FAERS Safety Report 4470777-8 (Version None)
Quarter: 2004Q4

REPORT INFORMATION
  Report Type: 
  Country: None (occurrence: None)
  Receive Date: 20041007
  Receipt Date: 20041007
  Transmission Date: 20050328
  Serious: Yes (Hospitalization)
  Sender: FDA-Public Use
  Company Number: None

PATIENT
  Age: 56 Year
  Sex: Female
  Weight: 65.318 kg

DRUGS (8)
  1. GEMCITABINE [Suspect]
     Indication: NON-SMALL CELL LUNG CANCER STAGE IIIA
     Dosage: 600MG/M2   D 1,8,22   INTRAVENOU
     Route: 042
     Dates: start: 20040621, end: 20040831
  2. CARBOPLATIN [Suspect]
     Dosage: AUC 2   D 1, 8,22  INTRAVENOU
     Route: 042
  3. LOVENOX [Concomitant]
  4. LOPRESSOR [Concomitant]
  5. PROTONIX [Concomitant]
  6. COLACE [Concomitant]
  7. GUAIFENESIN [Concomitant]
  8. ZOFRAN [Concomitant]

REACTIONS (1)
  - THROMBOCYTOPENIA [None]
